FAERS Safety Report 13097684 (Version 1)
Quarter: 2017Q1

REPORT INFORMATION
  Report Type: Spontaneous
  Country: US (occurrence: US)
  Receive Date: 20170108
  Receipt Date: 20170108
  Transmission Date: 20170428
  Serious: Yes (Disabling)
  Sender: FDA-Public Use
  Company Number: None

PATIENT
  Age: 38 Year
  Sex: Male
  Weight: 99 kg

DRUGS (11)
  1. CLONAZEPAM. [Concomitant]
     Active Substance: CLONAZEPAM
  2. BENZTROPINE [Concomitant]
     Active Substance: BENZTROPINE
  3. IBUPROFEN. [Concomitant]
     Active Substance: IBUPROFEN
  4. TAMSULOSIN [Concomitant]
     Active Substance: TAMSULOSIN
  5. XENAZINE [Concomitant]
     Active Substance: TETRABENAZINE
  6. CYCLOBENZAPRINE [Concomitant]
     Active Substance: CYCLOBENZAPRINE
  7. AMBIEN [Concomitant]
     Active Substance: ZOLPIDEM TARTRATE
  8. RELPAX [Concomitant]
     Active Substance: ELETRIPTAN HYDROBROMIDE
  9. LATUDA [Suspect]
     Active Substance: LURASIDONE HYDROCHLORIDE
     Indication: BIPOLAR DISORDER
     Dosage: ?          QUANTITY:30 CAPSULE(S);?
     Route: 048
  10. HYDROCODONE [Concomitant]
     Active Substance: HYDROCODONE
  11. FIORICET WITH CODEINE [Concomitant]
     Active Substance: ACETAMINOPHEN\BUTALBITAL\CAFFEINE\CODEINE PHOSPHATE

REACTIONS (3)
  - Tardive dyskinesia [None]
  - Cognitive disorder [None]
  - Hypertension [None]

NARRATIVE: CASE EVENT DATE: 20160301
